FAERS Safety Report 8161226-7 (Version None)
Quarter: 2012Q1

REPORT INFORMATION
  Report Type: 
  Country: None (occurrence: None)
  Receive Date: 20120103
  Receipt Date: 20111115
  Transmission Date: 20120608
  Serious: Yes (Other)
  Sender: FDA-Public Use
  Company Number: AE-2011-001784

PATIENT
  Age: 54 Year
  Sex: Female
  Weight: 105.2345 kg

DRUGS (8)
  1. IBUPROFEN [Concomitant]
  2. PEGASYS [Concomitant]
  3. BUPROPION HCL [Concomitant]
  4. PAXIL [Concomitant]
  5. RIBAVIRIN [Concomitant]
  6. LOTREL [Concomitant]
  7. INCIVEK [Suspect]
     Dates: start: 20110701
  8. SYNTHROID [Concomitant]

REACTIONS (5)
  - ANAEMIA [None]
  - DIZZINESS [None]
  - ANORECTAL DISCOMFORT [None]
  - FEELING ABNORMAL [None]
  - FATIGUE [None]
